FAERS Safety Report 25447245 (Version 1)
Quarter: 2025Q2

REPORT INFORMATION
  Report Type: Spontaneous
  Country: US (occurrence: US)
  Receive Date: 20250617
  Receipt Date: 20250617
  Transmission Date: 20250716
  Serious: No
  Sender: SANOFI AVENTIS
  Company Number: US-SA-2025SA170432

PATIENT
  Age: 95 Year
  Sex: Female
  Weight: 66.82 kg

DRUGS (12)
  1. DUPIXENT [Suspect]
     Active Substance: DUPILUMAB
     Indication: Nasal polyps
     Dosage: 300 MG, QOW
     Route: 058
  2. BRIMONIDINE TARTRATE [Concomitant]
     Active Substance: BRIMONIDINE TARTRATE
  3. DONEPEZIL [Concomitant]
     Active Substance: DONEPEZIL
  4. POTASSIUM CHLORIDE [Concomitant]
     Active Substance: POTASSIUM CHLORIDE
  5. METOPROLOL SUCCINATE [Concomitant]
     Active Substance: METOPROLOL SUCCINATE
  6. FUROSEMIDE [Concomitant]
     Active Substance: FUROSEMIDE
  7. SERTRALINE [Concomitant]
     Active Substance: SERTRALINE HYDROCHLORIDE
  8. LIDOCAINE [Concomitant]
     Active Substance: LIDOCAINE
  9. MELOXICAM [Concomitant]
     Active Substance: MELOXICAM
  10. KETOCONAZOLE [Concomitant]
     Active Substance: KETOCONAZOLE
  11. RALOXIFENE [Concomitant]
     Active Substance: RALOXIFENE
  12. AMITRIPTYLINE [Concomitant]
     Active Substance: AMITRIPTYLINE

REACTIONS (3)
  - Anosmia [Not Recovered/Not Resolved]
  - Rhinorrhoea [Not Recovered/Not Resolved]
  - Nasal crusting [Not Recovered/Not Resolved]

NARRATIVE: CASE EVENT DATE: 20250101
